FAERS Safety Report 9796381 (Version 2)
Quarter: 2014Q1

REPORT INFORMATION
  Report Type: Report from Study
  Country: US (occurrence: US)
  Receive Date: 20140103
  Receipt Date: 20140303
  Transmission Date: 20141002
  Serious: Yes (Death, Hospitalization)
  Sender: FDA-Public Use
  Company Number: US-GLAXOSMITHKLINE-A1055199A

PATIENT
  Age: 64 Year
  Sex: Female
  Weight: 53.9 kg

DRUGS (4)
  1. OFATUMUMAB [Suspect]
     Indication: B-CELL LYMPHOMA
     Route: 042
     Dates: start: 20130611
  2. BENDAMUSTINE [Suspect]
     Indication: B-CELL LYMPHOMA
     Dosage: 90MGM2 CYCLIC
     Route: 042
     Dates: start: 20130611
  3. BORTEZOMIB [Suspect]
     Indication: B-CELL LYMPHOMA
     Dosage: 1.6MGM2 CYCLIC
     Route: 042
     Dates: start: 20130611
  4. F-18 FLUORODEOXYGLUCOSE [Suspect]
     Indication: B-CELL LYMPHOMA
     Route: 040
     Dates: end: 20130820

REACTIONS (4)
  - Diarrhoea [Not Recovered/Not Resolved]
  - Nausea [Not Recovered/Not Resolved]
  - Vomiting [Not Recovered/Not Resolved]
  - Escherichia infection [Fatal]
